FAERS Safety Report 7252655-4 (Version None)
Quarter: 2011Q1

REPORT INFORMATION
  Report Type: 
  Country: None (occurrence: None)
  Receive Date: 20110129
  Receipt Date: 20100331
  Transmission Date: 20110831
  Serious: No
  Sender: FDA-Public Use
  Company Number: US-ABBOTT-10P-163-0636401-00

PATIENT
  Age: 65 Year
  Sex: Male

DRUGS (7)
  1. PENTASA [Concomitant]
     Indication: CROHN'S DISEASE
  2. PREDNISONE [Concomitant]
     Indication: CROHN'S DISEASE
     Dosage: PATIENT BE WEANED OFF THE MEDICATION BY THE END OF THE WEEK.
  3. ZYPREXA [Concomitant]
     Indication: DEPRESSION
  4. HUMIRA [Suspect]
     Indication: CROHN'S DISEASE
     Dosage: ONCE, 1ST LOADING DOSE
     Route: 058
     Dates: start: 20100319, end: 20100319
  5. HUMIRA [Suspect]
     Dosage: ONCE, 2ND LOADING DOSE
     Route: 058
     Dates: start: 20100326, end: 20100326
  6. HUMIRA [Suspect]
  7. PAXIL [Concomitant]
     Indication: DEPRESSION

REACTIONS (1)
  - ARTHRALGIA [None]
